FAERS Safety Report 7675327-0 (Version None)
Quarter: 2011Q3

REPORT INFORMATION
  Report Type: 
  Country: None (occurrence: None)
  Receive Date: 20110810
  Receipt Date: 20110728
  Transmission Date: 20111222
  Serious: Yes (Other)
  Sender: FDA-Public Use
  Company Number: US-MYLANLABS-2011S1006212

PATIENT
  Age: 17 Year
  Sex: Male
  Weight: 67.13 kg

DRUGS (2)
  1. AMNESTEEM [Suspect]
     Route: 048
     Dates: start: 20070606, end: 20080218
  2. AMNESTEEM [Suspect]
     Indication: ACNE
     Route: 048
     Dates: start: 20070606, end: 20080218

REACTIONS (10)
  - DRY SKIN [None]
  - BACK PAIN [None]
  - FREQUENT BOWEL MOVEMENTS [None]
  - HEADACHE [None]
  - BLOOD URINE PRESENT [None]
  - ABDOMINAL PAIN [None]
  - RECTAL HAEMORRHAGE [None]
  - DIZZINESS [None]
  - LAZINESS [None]
  - WEIGHT DECREASED [None]
